FAERS Safety Report 8887717 (Version 1)
Quarter: 2012Q4

REPORT INFORMATION
  Report Type: 
  Country: US (occurrence: US)
  Receive Date: 20121106
  Receipt Date: 20121106
  Transmission Date: 20130627
  Serious: Yes (Other)
  Sender: FDA-Public Use
  Company Number: US-TEVA-368033USA

PATIENT
  Age: 63 Year
  Sex: Male
  Weight: 83 kg

DRUGS (1)
  1. HETASTARCH [Suspect]
     Indication: HYPOTENSION
     Dosage: 500mL of 6%
     Route: 065

REACTIONS (1)
  - Nephrotic syndrome [Recovered/Resolved]
